FAERS Safety Report 9628380 (Version 1)
Quarter: 2013Q4

REPORT INFORMATION
  Report Type: Spontaneous
  Country: CH (occurrence: CH)
  Receive Date: 20131017
  Receipt Date: 20131017
  Transmission Date: 20140711
  Serious: Yes (Hospitalization)
  Sender: FDA-Public Use
  Company Number: CH-BAYER-2013-122044

PATIENT
  Age: 34 Year
  Sex: Female
  Weight: 75 kg

DRUGS (7)
  1. YASMIN [Suspect]
     Indication: ORAL CONTRACEPTION
     Dosage: 1 DF, QD
     Route: 048
     Dates: start: 2005, end: 201212
  2. SEROQUEL [Suspect]
     Indication: BIPOLAR DISORDER
     Dosage: 800 MG, QD
     Route: 048
     Dates: start: 2010, end: 201212
  3. SEROQUEL [Suspect]
     Indication: BIPOLAR DISORDER
     Dosage: 600 MG, QD
     Dates: start: 20120914
  4. SEROQUEL [Suspect]
     Indication: BIPOLAR DISORDER
     Dosage: 400 MG, QD
     Dates: start: 20121207
  5. LITHIOFOR [Concomitant]
     Indication: BIPOLAR DISORDER
     Dosage: 660 MG, BID
     Route: 048
     Dates: start: 201210
  6. IBUPROFEN [Concomitant]
     Indication: PAIN IN EXTREMITY
     Dosage: 400 MG, BID
     Route: 048
  7. SYMBICORT [Concomitant]
     Indication: ASTHMA
     Dosage: UNK
     Route: 055

REACTIONS (4)
  - Antiphospholipid syndrome [Unknown]
  - Peripheral artery thrombosis [Recovering/Resolving]
  - Peripheral ischaemia [Recovering/Resolving]
  - Skin necrosis [Recovering/Resolving]
